APPROVED DRUG PRODUCT: SODIUM PHENYLBUTYRATE
Active Ingredient: SODIUM PHENYLBUTYRATE
Strength: 500MG
Dosage Form/Route: TABLET;ORAL
Application: A204395 | Product #001 | TE Code: AB
Applicant: PH HEALTH LTD
Approved: Apr 15, 2016 | RLD: No | RS: Yes | Type: RX